FAERS Safety Report 21409804 (Version 1)
Quarter: 2022Q4

REPORT INFORMATION
  Report Type: Report from Study
  Country: US (occurrence: US)
  Receive Date: 20221005
  Receipt Date: 20221005
  Transmission Date: 20230112
  Serious: Yes (Other)
  Sender: FDA-Public Use
  Company Number: US-ABBVIE-4135593

PATIENT
  Sex: Male

DRUGS (3)
  1. HUMIRA [Suspect]
     Active Substance: ADALIMUMAB
     Indication: Rheumatoid arthritis
     Route: 058
  2. COVID-19 vaccine NRVV Ad26 JNJ 78436735 [Concomitant]
     Indication: COVID-19 immunisation
     Dosage: COVID VACCINE ?ONE IN ONCE
     Route: 030
  3. MODERNA COVID-19 VACCINE [Concomitant]
     Active Substance: ELASOMERAN
     Indication: COVID-19 immunisation
     Dosage: BOOSTER VACCINE?ONE IN ONCE
     Route: 030

REACTIONS (6)
  - Prostate cancer [Unknown]
  - Hip arthroplasty [Not Recovered/Not Resolved]
  - Cataract [Unknown]
  - Prostatic specific antigen increased [Not Recovered/Not Resolved]
  - Injection site haemorrhage [Unknown]
  - Hepatitis [Not Recovered/Not Resolved]
